FAERS Safety Report 20696168 (Version 1)
Quarter: 2022Q2

REPORT INFORMATION
  Report Type: Report from Study
  Country: US (occurrence: US)
  Receive Date: 20220411
  Receipt Date: 20220411
  Transmission Date: 20220721
  Serious: Yes (Hospitalization)
  Sender: FDA-Public Use
  Company Number: US-VALIDUS PHARMACEUTICALS LLC-US-VDP-2022-015305

PATIENT

DRUGS (3)
  1. LASIX [Suspect]
     Active Substance: FUROSEMIDE
     Indication: Product used for unknown indication
     Dosage: UNK
     Route: 065
  2. NOVOLOG [Suspect]
     Active Substance: INSULIN ASPART
     Indication: Diabetes mellitus
     Dosage: 25 UNIT, BID,70/30 FLEXPEN
     Route: 058
  3. OZEMPIC [Suspect]
     Active Substance: SEMAGLUTIDE
     Indication: Diabetes mellitus
     Dosage: 0.5 MG, QWK, 1.34 MG/ML PDS290
     Route: 058

REACTIONS (7)
  - Cystitis [Unknown]
  - Kidney infection [Unknown]
  - Escherichia infection [Unknown]
  - Urinary tract infection [Unknown]
  - Skin ulcer [Unknown]
  - Nephrolithiasis [Unknown]
  - Product dose omission issue [Unknown]
